FAERS Safety Report 19354455 (Version 1)
Quarter: 2021Q2

REPORT INFORMATION
  Report Type: Spontaneous
  Country: US (occurrence: US)
  Receive Date: 20210601
  Receipt Date: 20210601
  Transmission Date: 20210717
  Serious: No
  Sender: FDA-Public Use
  Company Number: None

PATIENT
  Age: 70 Year
  Sex: Male

DRUGS (1)
  1. SULFAMETHOXAZOLE/TRIMETHOPRIM (SULFAMETHOAZOLE 800MG/TRIMETHOPRIM 160M [Suspect]
     Active Substance: SULFAMETHOXAZOLE\TRIMETHOPRIM
     Indication: URINARY TRACT INFECTION
     Route: 048
     Dates: start: 20210411, end: 20210411

REACTIONS (5)
  - Toxic epidermal necrolysis [None]
  - Eye swelling [None]
  - Ocular hyperaemia [None]
  - Erythema multiforme [None]
  - Stevens-Johnson syndrome [None]

NARRATIVE: CASE EVENT DATE: 20210411
